FAERS Safety Report 20160317 (Version 3)
Quarter: 2021Q4

REPORT INFORMATION
  Report Type: Report from Study
  Country: US (occurrence: US)
  Receive Date: 20211208
  Receipt Date: 20211217
  Transmission Date: 20220303
  Serious: Yes (Hospitalization)
  Sender: FDA-Public Use
  Company Number: US-APELLIS-01048

PATIENT
  Age: 73 Year
  Sex: Male

DRUGS (7)
  1. EMPAVELI [Suspect]
     Active Substance: PEGCETACOPLAN
     Indication: Paroxysmal nocturnal haemoglobinuria
     Route: 058
     Dates: start: 20210903
  2. 1122558 (GLOBALC3Sep21): Calcitrol [Concomitant]
     Indication: Product used for unknown indication
  3. 184614 (GLOBALC3Sep21): Folic Acid [Concomitant]
     Indication: Product used for unknown indication
  4. 100171 (GLOBALC3Sep21): Vitamin B12 [Concomitant]
     Indication: Product used for unknown indication
  5. 3575118 (GLOBALC3Sep21): Quercetin [Concomitant]
     Indication: Product used for unknown indication
  6. 1574618 (GLOBALC3Sep21): Sodium Bicarbonate [Concomitant]
     Indication: Product used for unknown indication
  7. 54945 (GLOBALC3Sep21): CoQ10 [Concomitant]
     Indication: Product used for unknown indication

REACTIONS (7)
  - Pneumonia [Recovering/Resolving]
  - Subdural haemorrhage [Not Recovered/Not Resolved]
  - Head injury [Recovering/Resolving]
  - Fall [Recovering/Resolving]
  - Loss of consciousness [Not Recovered/Not Resolved]
  - Cerebral haemorrhage [Not Recovered/Not Resolved]
  - Product dose omission issue [Unknown]

NARRATIVE: CASE EVENT DATE: 20211115
